FAERS Safety Report 16986401 (Version 5)
Quarter: 2020Q2

REPORT INFORMATION
  Report Type: Report from Study
  Country: CA (occurrence: CA)
  Receive Date: 20191101
  Receipt Date: 20200421
  Transmission Date: 20200713
  Serious: Yes (Hospitalization)
  Sender: FDA-Public Use
  Company Number: PHHY2019CA034823

PATIENT
  Age: 68 Year
  Sex: Female

DRUGS (8)
  1. COSENTYX [Suspect]
     Active Substance: SECUKINUMAB
     Indication: PSORIASIS
     Dosage: 300 MG, QW
     Route: 058
     Dates: start: 20190211
  2. COSENTYX [Suspect]
     Active Substance: SECUKINUMAB
     Dosage: 300 MG, QMO
     Route: 058
     Dates: start: 20191024
  3. COSENTYX [Suspect]
     Active Substance: SECUKINUMAB
     Dosage: 300 MG, QMO
     Route: 058
     Dates: start: 20190304
  4. COSENTYX [Suspect]
     Active Substance: SECUKINUMAB
     Dosage: 300 MG, QMO
     Route: 058
     Dates: start: 20190603
  5. STELARA [Concomitant]
     Active Substance: USTEKINUMAB
     Indication: PRODUCT USED FOR UNKNOWN INDICATION
     Dosage: UNK
     Route: 058
     Dates: start: 2017
  6. COSENTYX [Suspect]
     Active Substance: SECUKINUMAB
     Dosage: 300 MG, QMO
     Route: 058
     Dates: start: 20190730
  7. COSENTYX [Suspect]
     Active Substance: SECUKINUMAB
     Dosage: 300 MG, QMO
     Route: 058
     Dates: start: 20191217, end: 20200406
  8. COSENTYX [Suspect]
     Active Substance: SECUKINUMAB
     Dosage: 300 MG, QMO
     Route: 058
     Dates: start: 20190702

REACTIONS (14)
  - Blood pressure decreased [Unknown]
  - Infection [Unknown]
  - Blood pressure diastolic decreased [Unknown]
  - Pruritus [Unknown]
  - Gastrointestinal disorder [Unknown]
  - Tremor [Unknown]
  - Nasopharyngitis [Recovered/Resolved]
  - Psoriasis [Unknown]
  - Blood pressure systolic increased [Not Recovered/Not Resolved]
  - Heat stroke [Unknown]
  - Nausea [Unknown]
  - Heart rate increased [Unknown]
  - Fear of injection [Unknown]
  - Diarrhoea [Unknown]

NARRATIVE: CASE EVENT DATE: 2019
